FAERS Safety Report 9283276 (Version 1)
Quarter: 2013Q2

REPORT INFORMATION
  Report Type: Spontaneous
  Country: US (occurrence: US)
  Receive Date: 20130510
  Receipt Date: 20130510
  Transmission Date: 20140414
  Serious: No
  Sender: FDA-Public Use
  Company Number: US-GLAXOSMITHKLINE-A0993943A

PATIENT
  Sex: Female
  Weight: 55 kg

DRUGS (10)
  1. TYKERB [Suspect]
     Indication: PRODUCT USED FOR UNKNOWN INDICATION
     Dosage: 5TAB PER DAY
     Route: 048
  2. PROMETHAZINE [Suspect]
     Indication: PRODUCT USED FOR UNKNOWN INDICATION
     Route: 065
  3. XELODA [Suspect]
     Indication: PRODUCT USED FOR UNKNOWN INDICATION
     Route: 065
  4. BENADRYL ALLERGY + SINUS HEAD [Concomitant]
  5. OXYCODONE [Concomitant]
     Route: 065
  6. ZOFRAN [Concomitant]
     Route: 065
  7. IMODIUM A-D [Concomitant]
     Route: 065
  8. ADVIL [Concomitant]
     Route: 065
  9. XELODA [Concomitant]
     Route: 065
  10. PHENERGAN [Concomitant]
     Route: 065

REACTIONS (1)
  - Nausea [Unknown]
